FAERS Safety Report 4508370-0 (Version None)
Quarter: 2004Q4

REPORT INFORMATION
  Report Type: 
  Country: None (occurrence: None)
  Receive Date: 20041118
  Receipt Date: 20041109
  Transmission Date: 20050328
  Serious: Yes (Disabling)
  Sender: FDA-Public Use
  Company Number: 2004-11-0120

PATIENT
  Age: 36 Year
  Sex: Male

DRUGS (2)
  1. REBETOL [Suspect]
     Indication: HEPATITIS C
     Dosage: 200 MG ORAL
     Route: 048
     Dates: start: 20040801
  2. INTRON A [Suspect]
     Indication: HEPATITIS C
     Dosage: 3 MU SUBCUTANEOUS
     Route: 058
     Dates: start: 20040801, end: 20041101

REACTIONS (6)
  - DIZZINESS [None]
  - HYPERTENSION [None]
  - HYPERTHERMIA [None]
  - INFLUENZA LIKE ILLNESS [None]
  - LOSS OF CONSCIOUSNESS [None]
  - REFUSAL OF TREATMENT BY PATIENT [None]
